FAERS Safety Report 7774540-1 (Version None)
Quarter: 2011Q3

REPORT INFORMATION
  Report Type: 
  Country: None (occurrence: None)
  Receive Date: 20110923
  Receipt Date: 20110923
  Transmission Date: 20111222
  Serious: Yes (Life-Threatening, Hospitalization)
  Sender: FDA-Public Use
  Company Number: None

PATIENT
  Sex: Male
  Weight: 129.27 kg

DRUGS (2)
  1. DABIGATRAN [Suspect]
     Indication: ATRIAL FIBRILLATION
     Dosage: 150 MG
     Route: 048
  2. DRONEDARONE HCL [Concomitant]
     Indication: ATRIAL FIBRILLATION
     Dosage: 400 MG
     Route: 048

REACTIONS (9)
  - RENAL TUBULAR DISORDER [None]
  - HYPOTENSION [None]
  - PROTHROMBIN TIME PROLONGED [None]
  - LACTIC ACIDOSIS [None]
  - DEHYDRATION [None]
  - RENAL FAILURE ACUTE [None]
  - RECTAL HAEMORRHAGE [None]
  - ACTIVATED PARTIAL THROMBOPLASTIN TIME PROLONGED [None]
  - ACUTE PRERENAL FAILURE [None]
